FAERS Safety Report 4800025-8 (Version None)
Quarter: 2005Q4

REPORT INFORMATION
  Report Type: 
  Country: None (occurrence: None)
  Receive Date: 20051017
  Receipt Date: 20051005
  Transmission Date: 20060501
  Serious: Yes (Other)
  Sender: FDA-Public Use
  Company Number: US-JNJFOC-20051001160

PATIENT
  Age: 6 Decade
  Sex: Female

DRUGS (1)
  1. REMICADE [Suspect]
     Indication: RHEUMATOID ARTHRITIS
     Dosage: DATES OF ADMINISTRATION SPAN 2-4 YEARS.
     Route: 042

REACTIONS (4)
  - BRAIN MASS [None]
  - DIZZINESS [None]
  - DYSARTHRIA [None]
  - TOXOPLASMOSIS [None]
